FAERS Safety Report 5149717-4 (Version None)
Quarter: 2006Q4

REPORT INFORMATION
  Report Type: 
  Country: None (occurrence: None)
  Receive Date: 20061113
  Receipt Date: 20061103
  Transmission Date: 20070319
  Serious: Yes (Life-Threatening, Hospitalization)
  Sender: FDA-Public Use
  Company Number: ES-NOVOPROD-258255

PATIENT
  Sex: Female
  Weight: 87 kg

DRUGS (4)
  1. NOVOSEVEN [Suspect]
     Indication: POST PROCEDURAL HAEMORRHAGE
     Dosage: 1 DOSE
     Route: 042
     Dates: start: 20061025
  2. ENOXAPARIN SODIUM [Concomitant]
     Dosage: 120 MG, QD
     Route: 060
     Dates: start: 20061029
  3. ASPIRIN [Concomitant]
     Dosage: 100 MG, QD
     Route: 048
     Dates: start: 20061029
  4. ACENOCUMAROL [Concomitant]
     Dosage: 3 MG, QD
     Route: 048
     Dates: start: 20061027

REACTIONS (1)
  - CARDIAC TAMPONADE [None]
